FAERS Safety Report 5076928-9 (Version None)
Quarter: 2006Q3

REPORT INFORMATION
  Report Type: 
  Country: None (occurrence: None)
  Receive Date: 20060810
  Receipt Date: 20050608
  Transmission Date: 20061208
  Serious: No
  Sender: FDA-Public Use
  Company Number: US-GLAXOSMITHKLINE-A0561803A

PATIENT
  Age: 7 Year
  Sex: Female

DRUGS (2)
  1. PAXIL [Suspect]
     Indication: OBSESSIVE-COMPULSIVE DISORDER
     Dosage: 35MG PER DAY
     Route: 048
     Dates: start: 20021201
  2. NO CONCURRENT MEDICATION [Concomitant]

REACTIONS (4)
  - EMOTIONAL DISORDER [None]
  - FEELING ABNORMAL [None]
  - MOOD SWINGS [None]
  - PHARMACEUTICAL PRODUCT COMPLAINT [None]
